FAERS Safety Report 5699257-9 (Version None)
Quarter: 2008Q2

REPORT INFORMATION
  Report Type: 
  Country: None (occurrence: None)
  Receive Date: 20080407
  Receipt Date: 20080407
  Transmission Date: 20081010
  Serious: Yes (Life-Threatening, Disabling)
  Sender: FDA-Public Use
  Company Number: None

PATIENT
  Age: 58 Year
  Sex: Female
  Weight: 80 kg

DRUGS (1)
  1. ARESTIN [Suspect]
     Indication: GINGIVAL DISORDER
     Dates: start: 20080324, end: 20080402

REACTIONS (6)
  - CHEST PAIN [None]
  - DRUG HYPERSENSITIVITY [None]
  - DRY MOUTH [None]
  - HYPOAESTHESIA [None]
  - INFLUENZA [None]
  - RENAL PAIN [None]
